FAERS Safety Report 25750388 (Version 1)
Quarter: 2025Q3

REPORT INFORMATION
  Report Type: Spontaneous
  Country: US (occurrence: US)
  Receive Date: 20250902
  Receipt Date: 20250902
  Transmission Date: 20251021
  Serious: Yes (Life-Threatening, Hospitalization, Other)
  Sender: PFIZER
  Company Number: US-PFIZER INC-PV202500103215

PATIENT
  Age: 69 Year
  Sex: Male

DRUGS (2)
  1. BEVACIZUMAB [Suspect]
     Active Substance: BEVACIZUMAB
     Indication: Age-related macular degeneration
     Route: 047
  2. BEVACIZUMAB [Suspect]
     Active Substance: BEVACIZUMAB
     Route: 047

REACTIONS (3)
  - Prosthetic cardiac valve thrombosis [Recovered/Resolved]
  - Off label use [Unknown]
  - Off label use [Unknown]
